FAERS Safety Report 9577277 (Version 1)
Quarter: 2013Q4

REPORT INFORMATION
  Report Type: Spontaneous
  Country: US (occurrence: US)
  Receive Date: 20131001
  Receipt Date: 20131001
  Transmission Date: 20140711
  Serious: Yes (Other)
  Sender: FDA-Public Use
  Company Number: US-AMGEN-USASP2013007472

PATIENT
  Sex: Female
  Weight: 81.63 kg

DRUGS (2)
  1. ENBREL [Suspect]
     Indication: PSORIATIC ARTHROPATHY
     Dosage: 50 MG, 2 TIMES/WK
  2. HYDROCHLOROTHIAZIDE [Concomitant]
     Dosage: 25 MG, UNK

REACTIONS (1)
  - Appendicitis [Recovered/Resolved]
